FAERS Safety Report 25361100 (Version 8)
Quarter: 2025Q3

REPORT INFORMATION
  Report Type: Spontaneous
  Country: US (occurrence: US)
  Receive Date: 20250527
  Receipt Date: 20250904
  Transmission Date: 20251021
  Serious: Yes (Other)
  Sender: CSL BEHRING
  Company Number: US-BEH-2025206384

PATIENT
  Age: 40 Year
  Sex: Female
  Weight: 90.703 kg

DRUGS (10)
  1. HAEGARDA [Suspect]
     Active Substance: HUMAN C1-ESTERASE INHIBITOR
     Indication: Hereditary angioedema
     Dosage: 3000 IU, BIW
     Route: 058
     Dates: start: 202504
  2. HAEGARDA [Suspect]
     Active Substance: HUMAN C1-ESTERASE INHIBITOR
     Indication: Prophylaxis
     Dosage: 5000 IU, BIW
     Route: 058
     Dates: start: 202504
  3. HAEGARDA [Suspect]
     Active Substance: HUMAN C1-ESTERASE INHIBITOR
     Indication: Prophylaxis
     Dosage: 2000 IU, BIW
     Route: 058
     Dates: start: 202504
  4. HAEGARDA [Suspect]
     Active Substance: HUMAN C1-ESTERASE INHIBITOR
     Indication: Hereditary angioedema
     Dosage: 5000 IU, BIW
     Route: 058
     Dates: start: 202504
  5. STERILE WATER [Concomitant]
     Active Substance: WATER
  6. SODIUM CHLORIDE [Concomitant]
     Active Substance: SODIUM CHLORIDE
  7. RUCONEST [Concomitant]
     Active Substance: CONESTAT ALFA
  8. PEPCID [Concomitant]
     Active Substance: FAMOTIDINE
  9. PROBIOTICS NOS [Concomitant]
     Active Substance: PROBIOTICS NOS
  10. XYZAL [Concomitant]
     Active Substance: LEVOCETIRIZINE DIHYDROCHLORIDE

REACTIONS (13)
  - Hereditary angioedema [Recovered/Resolved]
  - Hereditary angioedema [Unknown]
  - Hereditary angioedema [Unknown]
  - Hereditary angioedema [Unknown]
  - Hereditary angioedema [Recovered/Resolved]
  - Hereditary angioedema [Recovered/Resolved]
  - Hereditary angioedema [Recovered/Resolved]
  - Hereditary angioedema [Recovered/Resolved]
  - Hereditary angioedema [Unknown]
  - Hereditary angioedema [Unknown]
  - Injection site swelling [Unknown]
  - Weight increased [Unknown]
  - Product dose omission in error [Unknown]

NARRATIVE: CASE EVENT DATE: 20250101
